FAERS Safety Report 10086593 (Version 2)
Quarter: 2014Q2

REPORT INFORMATION
  Report Type: Report from Study
  Country: US (occurrence: US)
  Receive Date: 20140418
  Receipt Date: 20140418
  Transmission Date: 20141212
  Serious: Yes (Hospitalization)
  Sender: FDA-Public Use
  Company Number: US-CELGENEUS-163-C4047-14040073

PATIENT
  Age: 68 Year
  Sex: Female
  Weight: 60.7 kg

DRUGS (21)
  1. CC-4047 [Suspect]
     Indication: PLASMA CELL MYELOMA
     Dosage: 4 MILLIGRAM
     Route: 048
     Dates: start: 20140121, end: 20140317
  2. CC-4047 [Suspect]
     Dosage: 4 MILLIGRAM
     Route: 048
     Dates: start: 20140326, end: 20140407
  3. DEXAMETHASONE [Suspect]
     Indication: PLASMA CELL MYELOMA
     Dosage: 24 MILLIGRAM
     Route: 041
  4. DEXAMETHASONE [Suspect]
     Route: 048
  5. DEXAMETHASONE [Suspect]
     Dosage: 40 MILLIGRAM
     Route: 065
     Dates: end: 20140407
  6. CARFILZOMIB [Suspect]
     Indication: PLASMA CELL MYELOMA
     Route: 041
     Dates: start: 20140121, end: 20140312
  7. CARFILZOMIB [Suspect]
     Route: 041
     Dates: start: 20140401, end: 20140407
  8. DEPO-MEDROL [Concomitant]
     Indication: PAIN MANAGEMENT
     Route: 041
  9. SENSORCAINE [Concomitant]
     Indication: PAIN MANAGEMENT
     Dosage: 3ML
     Route: 041
  10. MAGNESIUM [Concomitant]
     Indication: PRODUCT USED FOR UNKNOWN INDICATION
     Route: 065
  11. NEUPOGEN [Concomitant]
     Indication: PRODUCT USED FOR UNKNOWN INDICATION
     Route: 065
  12. COLACE [Concomitant]
     Indication: PRODUCT USED FOR UNKNOWN INDICATION
     Route: 065
  13. TYLENOL [Concomitant]
     Indication: PRODUCT USED FOR UNKNOWN INDICATION
     Route: 065
  14. QUININE [Concomitant]
     Indication: PRODUCT USED FOR UNKNOWN INDICATION
     Route: 065
  15. PAMIDRONATE [Concomitant]
     Indication: PRODUCT USED FOR UNKNOWN INDICATION
     Route: 065
  16. ZANTAC [Concomitant]
     Indication: PRODUCT USED FOR UNKNOWN INDICATION
     Route: 065
  17. ASPIRIN [Concomitant]
     Indication: PRODUCT USED FOR UNKNOWN INDICATION
     Route: 065
  18. CELEXA [Concomitant]
     Indication: PRODUCT USED FOR UNKNOWN INDICATION
     Route: 065
  19. ZOPICLONE [Concomitant]
     Indication: PRODUCT USED FOR UNKNOWN INDICATION
     Route: 065
  20. VITAMIN B12 [Concomitant]
     Indication: PRODUCT USED FOR UNKNOWN INDICATION
     Route: 065
  21. RESTORALAX [Concomitant]
     Indication: PRODUCT USED FOR UNKNOWN INDICATION
     Route: 065

REACTIONS (3)
  - Pneumonia aspiration [Unknown]
  - Febrile neutropenia [Unknown]
  - Hemiparesis [Unknown]
